FAERS Safety Report 7078652-X (Version None)
Quarter: 2010Q4

REPORT INFORMATION
  Report Type: 
  Country: None (occurrence: None)
  Receive Date: 20101102
  Receipt Date: 20101025
  Transmission Date: 20110411
  Serious: Yes (Other)
  Sender: FDA-Public Use
  Company Number: PHFR2010GB04980

PATIENT
  Sex: Male

DRUGS (1)
  1. CLOZARIL [Suspect]
     Indication: SCHIZOPHRENIA
     Dosage: UNK
     Route: 048
     Dates: start: 20090924, end: 20101001

REACTIONS (4)
  - HAEMOPTYSIS [None]
  - INFECTION [None]
  - MALAISE [None]
  - TREATMENT NONCOMPLIANCE [None]
